FAERS Safety Report 9275206 (Version 4)
Quarter: 2013Q4

REPORT INFORMATION
  Report Type: Spontaneous
  Country: US (occurrence: US)
  Receive Date: 20130507
  Receipt Date: 20131226
  Transmission Date: 20140711
  Serious: Yes (Hospitalization)
  Sender: FDA-Public Use
  Company Number: US-BAYER-2013-054782

PATIENT
  Age: 30 Year
  Sex: Female
  Weight: 65.76 kg

DRUGS (5)
  1. MIRENA [Suspect]
     Indication: CONTRACEPTION
     Dosage: 20 MCG/24HR, CONT
     Route: 015
     Dates: start: 2005, end: 2010
  2. MIRENA [Suspect]
     Indication: CONTRACEPTION
     Dosage: 20 MCG/24HR, UNK
     Dates: start: 2010, end: 20110628
  3. MIRENA [Suspect]
     Indication: CONTRACEPTION
     Dosage: 20 MCG/24HR, CONT
     Dates: start: 2012, end: 201212
  4. PRENATAL VITAMINS [Concomitant]
  5. MONISTAT-7 [Concomitant]

REACTIONS (12)
  - Uterine perforation [None]
  - Injury [None]
  - Discomfort [None]
  - Pain [None]
  - General physical health deterioration [None]
  - Procedural pain [None]
  - Emotional distress [None]
  - Irritability [None]
  - Anxiety [None]
  - Depression [None]
  - Abdominal pain lower [None]
  - Menorrhagia [Recovered/Resolved]
